FAERS Safety Report 6535685-7 (Version None)
Quarter: 2010Q1

REPORT INFORMATION
  Report Type: 
  Country: None (occurrence: None)
  Receive Date: 20100111
  Receipt Date: 20100111
  Transmission Date: 20100710
  Serious: No
  Sender: FDA-Public Use
  Company Number: None

PATIENT
  Age: 32 Year
  Sex: Male
  Weight: 88.4514 kg

DRUGS (1)
  1. ZICAM COLD REMEDY NASAL GEL  MATRIX INITIATIVES [Suspect]
     Indication: ANTIVIRAL PROPHYLAXIS
     Dosage: NASAL
     Route: 045
     Dates: start: 20090731, end: 20090731

REACTIONS (3)
  - ANOSMIA [None]
  - DYSGEUSIA [None]
  - NASAL DISCOMFORT [None]
